FAERS Safety Report 4841158-X (Version None)
Quarter: 2005Q4

REPORT INFORMATION
  Report Type: 
  Country: None (occurrence: None)
  Receive Date: 20051130
  Receipt Date: 20051017
  Transmission Date: 20060501
  Serious: Yes (Hospitalization)
  Sender: FDA-Public Use
  Company Number: US-BRISTOL-MYERS SQUIBB COMPANY-13147376

PATIENT
  Age: 26 Year
  Sex: Female

DRUGS (3)
  1. ABILIFY [Suspect]
  2. BENZODIAZEPINE [Concomitant]
  3. SUBOXONE [Concomitant]

REACTIONS (1)
  - CONVULSION [None]
